FAERS Safety Report 7083406-4 (Version None)
Quarter: 2010Q4

REPORT INFORMATION
  Report Type: 
  Country: None (occurrence: None)
  Receive Date: 20101104
  Receipt Date: 20101102
  Transmission Date: 20110411
  Serious: Yes (Congenital Anomaly)
  Sender: FDA-Public Use
  Company Number: A0851710A

PATIENT

DRUGS (1)
  1. PAXIL [Suspect]
     Indication: DEPRESSION
     Dates: start: 19980101

REACTIONS (4)
  - DRUG EXPOSURE DURING PREGNANCY [None]
  - LUNG DISORDER [None]
  - PERSISTENT FOETAL CIRCULATION [None]
  - RESPIRATORY SYNCYTIAL VIRUS INFECTION [None]
